FAERS Safety Report 5431636-7 (Version None)
Quarter: 2007Q3

REPORT INFORMATION
  Report Type: 
  Country: None (occurrence: None)
  Receive Date: 20070828
  Receipt Date: 20070814
  Transmission Date: 20080115
  Serious: Yes (Hospitalization, Other)
  Sender: FDA-Public Use
  Company Number: 236816K07USA

PATIENT
  Age: 57 Year
  Sex: Female

DRUGS (2)
  1. REBIF [Suspect]
     Indication: MULTIPLE SCLEROSIS
     Dosage: 44 MCG, 3 NI 1 WEEKS, SUBCUTANEOUS
     Route: 058
     Dates: start: 20030811
  2. VALIUM [Concomitant]

REACTIONS (6)
  - CONDITION AGGRAVATED [None]
  - DIABETES MELLITUS [None]
  - INJECTION SITE ERYTHEMA [None]
  - INJECTION SITE PAIN [None]
  - MEMORY IMPAIRMENT [None]
  - MULTIPLE SCLEROSIS [None]
